FAERS Safety Report 17982555 (Version 1)
Quarter: 2020Q3

REPORT INFORMATION
  Report Type: Spontaneous
  Country: US (occurrence: US)
  Receive Date: 20200702
  Receipt Date: 20200702
  Transmission Date: 20201103
  Serious: No
  Sender: FDA-Public Use
  Company Number: None

PATIENT
  Age: 48 Year
  Sex: Female

DRUGS (13)
  1. CALCIFEROL [Concomitant]
  2. SYNTHROID [Concomitant]
     Active Substance: LEVOTHYROXINE SODIUM
  3. MONTELUKAST [Concomitant]
     Active Substance: MONTELUKAST SODIUM
  4. FLUCONAZOLE. [Concomitant]
     Active Substance: FLUCONAZOLE
  5. BUDESONIDE. [Concomitant]
     Active Substance: BUDESONIDE
  6. LEVOTHYROXIN [Concomitant]
     Active Substance: LEVOTHYROXINE
  7. FAMOTIDINE. [Concomitant]
     Active Substance: FAMOTIDINE
  8. ATORVASTATIN [Concomitant]
     Active Substance: ATORVASTATIN
  9. SUCRALFATE. [Concomitant]
     Active Substance: SUCRALFATE
  10. ORENCIA [Suspect]
     Active Substance: ABATACEPT
     Indication: RHEUMATOID ARTHRITIS
     Route: 058
     Dates: start: 20190130, end: 20200409
  11. RANITIDINE. [Concomitant]
     Active Substance: RANITIDINE
  12. VITAMIN D [Concomitant]
     Active Substance: VITAMIN D NOS
  13. HYOSCYAMINE. [Concomitant]
     Active Substance: HYOSCYAMINE

REACTIONS (4)
  - Condition aggravated [None]
  - Infection [None]
  - Pain [None]
  - Loss of personal independence in daily activities [None]
